FAERS Safety Report 25658402 (Version 1)
Quarter: 2025Q3

REPORT INFORMATION
  Report Type: Spontaneous
  Country: EU (occurrence: EU)
  Receive Date: 20250808
  Receipt Date: 20250808
  Transmission Date: 20251021
  Serious: Yes (Hospitalization, Other)
  Sender: AUROBINDO
  Company Number: EU-AFSSAPS-PC2025000654

PATIENT
  Age: 59 Year
  Sex: Female

DRUGS (1)
  1. CLOZAPINE [Suspect]
     Active Substance: CLOZAPINE
     Indication: Schizophrenia
     Dosage: 400 MILLIGRAM, ONCE A DAY
     Route: 048
     Dates: start: 20250626, end: 20250708

REACTIONS (4)
  - Neutropenia [Recovered/Resolved]
  - Agranulocytosis [Recovered/Resolved]
  - Product dose omission in error [Recovered/Resolved]
  - Product prescribing error [Recovered/Resolved]

NARRATIVE: CASE EVENT DATE: 20250620
